FAERS Safety Report 9118341 (Version 1)
Quarter: 2013Q1

REPORT INFORMATION
  Report Type: Spontaneous
  Country: IT (occurrence: None)
  Receive Date: 20130128
  Receipt Date: 20130128
  Transmission Date: 20140127
  Serious: Yes (Other)
  Sender: FDA-Public Use
  Company Number: AUR-APL-2013-00890

PATIENT
  Age: 60 Year
  Sex: Female

DRUGS (1)
  1. MIRTAZAPINE (MIRTAZAPINE) [Suspect]
     Indication: INSOMNIA
     Dosage: (1  DOSAGE FORMS,  1 D)  ORAL?09/28/2012  -  10/01/2012
     Route: 048
     Dates: start: 20120928, end: 20121001

REACTIONS (4)
  - Feeling jittery [None]
  - Restless legs syndrome [None]
  - Agitation [None]
  - Nervousness [None]
